FAERS Safety Report 7274918-9 (Version None)
Quarter: 2010Q4

REPORT INFORMATION
  Report Type: 
  Country: None (occurrence: None)
  Receive Date: 20101206
  Receipt Date: 20100826
  Transmission Date: 20110411
  Serious: No
  Sender: FDA-Public Use
  Company Number: 2010SP046395

PATIENT
  Age: 18 Year
  Sex: Female

DRUGS (5)
  1. SAPHRIS [Suspect]
     Indication: BIPOLAR DISORDER
     Dosage: 5 MG;QD;PO, 5 MG;BID;PO
     Route: 048
     Dates: end: 20100501
  2. SAPHRIS [Suspect]
     Indication: PULMONARY EMBOLISM
     Dosage: 5 MG;QD;PO, 5 MG;BID;PO
     Route: 048
     Dates: end: 20100501
  3. SAPHRIS [Suspect]
     Indication: BIPOLAR DISORDER
     Dosage: 5 MG;QD;PO, 5 MG;BID;PO
     Route: 048
     Dates: start: 20100401
  4. SAPHRIS [Suspect]
     Indication: PULMONARY EMBOLISM
     Dosage: 5 MG;QD;PO, 5 MG;BID;PO
     Route: 048
     Dates: start: 20100401
  5. STRATTERA [Concomitant]

REACTIONS (4)
  - INAPPROPRIATE SCHEDULE OF DRUG ADMINISTRATION [None]
  - INCORRECT ROUTE OF DRUG ADMINISTRATION [None]
  - SOMNOLENCE [None]
  - UNDERDOSE [None]
